FAERS Safety Report 24869591 (Version 1)
Quarter: 2025Q1

REPORT INFORMATION
  Report Type: Spontaneous
  Country: US (occurrence: None)
  Receive Date: 20250118
  Receipt Date: 20250118
  Transmission Date: 20250409
  Serious: Yes (Hospitalization, Other)
  Sender: FDA-CTU
  Company Number: None

PATIENT
  Age: 28 Year
  Sex: Male
  Weight: 60.75 kg

DRUGS (1)
  1. LYLLANA [Suspect]
     Active Substance: ESTRADIOL
     Indication: Gender dysphoria
     Dosage: 1 PATCH TWICE A WEEK TRANSDERMAL
     Route: 062

REACTIONS (15)
  - Cholecystectomy [None]
  - Product prescribing error [None]
  - Wrong product administered [None]
  - Weight increased [None]
  - Thrombosis [None]
  - Blood cholesterol increased [None]
  - Brain fog [None]
  - Schizophrenia [None]
  - Depression [None]
  - Anxiety [None]
  - Scoliosis [None]
  - Osteoporosis [None]
  - Sexual dysfunction [None]
  - Cerebral disorder [None]
  - Cognitive disorder [None]

NARRATIVE: CASE EVENT DATE: 20201020
